FAERS Safety Report 16173964 (Version 3)
Quarter: 2020Q2

REPORT INFORMATION
  Report Type: Spontaneous
  Country: US (occurrence: US)
  Receive Date: 20190409
  Receipt Date: 20200623
  Transmission Date: 20200713
  Serious: Yes (Life-Threatening, Hospitalization, Other)
  Sender: FDA-Public Use
  Company Number: US-DRREDDYS-USA/USA/19/0109303

PATIENT
  Age: 11 Year
  Sex: Female
  Weight: 30 kg

DRUGS (13)
  1. PREDNISONE. [Suspect]
     Active Substance: PREDNISONE
     Route: 065
  2. TACROLIMUS. [Suspect]
     Active Substance: TACROLIMUS
     Indication: NEPHROTIC SYNDROME
     Route: 065
  3. SULFAMETHOXAZOLE, TRIMETHOPRIM [Suspect]
     Active Substance: SULFAMETHOXAZOLE\TRIMETHOPRIM
     Indication: NOCARDIOSIS
     Route: 042
  4. PREDNISONE. [Suspect]
     Active Substance: PREDNISONE
     Indication: IMMUNOSUPPRESSANT DRUG THERAPY
     Route: 065
  5. IMMUNOGLOBULINS [Concomitant]
     Indication: HYPOGAMMAGLOBULINAEMIA
     Route: 042
  6. TACROLIMUS. [Suspect]
     Active Substance: TACROLIMUS
     Indication: IMMUNOSUPPRESSANT DRUG THERAPY
     Route: 065
  7. TACROLIMUS. [Suspect]
     Active Substance: TACROLIMUS
     Route: 065
  8. CYCLOPHOSPHAMIDE. [Suspect]
     Active Substance: CYCLOPHOSPHAMIDE
     Indication: IMMUNOSUPPRESSANT DRUG THERAPY
     Route: 048
  9. TACROLIMUS. [Suspect]
     Active Substance: TACROLIMUS
     Route: 065
  10. ALBUMIN [Concomitant]
     Active Substance: ALBUMIN HUMAN
     Route: 065
  11. ALBUMIN [Concomitant]
     Active Substance: ALBUMIN HUMAN
     Dosage: 11 SESSIONS
     Route: 065
  12. RITUXIMAB. [Suspect]
     Active Substance: RITUXIMAB
     Indication: IMMUNOSUPPRESSANT DRUG THERAPY
     Dosage: THREE COURSES OF RITUXIMAB 375 MG/M2 /DOSE WERE ALSO ADMINISTERED A WEEK APART
     Route: 065
  13. ALBUMIN [Concomitant]
     Active Substance: ALBUMIN HUMAN
     Indication: HYPOGAMMAGLOBULINAEMIA
     Route: 065

REACTIONS (3)
  - Pancreatitis acute [Recovered/Resolved]
  - Nocardiosis [Recovering/Resolving]
  - Posterior reversible encephalopathy syndrome [Recovering/Resolving]
